FAERS Safety Report 7038354-2 (Version None)
Quarter: 2010Q4

REPORT INFORMATION
  Report Type: 
  Country: None (occurrence: None)
  Receive Date: 20101011
  Receipt Date: 20091106
  Transmission Date: 20110411
  Serious: No
  Sender: FDA-Public Use
  Company Number: US-PFIZER INC-2009294993

PATIENT
  Sex: Male
  Weight: 114 kg

DRUGS (1)
  1. GABAPENTIN [Suspect]
     Indication: DIABETIC NEUROPATHY
     Dosage: 300 MG, 1X/DAY
     Dates: start: 20091029

REACTIONS (7)
  - BACK PAIN [None]
  - DIZZINESS [None]
  - DRUG INEFFECTIVE [None]
  - DYSARTHRIA [None]
  - HEADACHE [None]
  - MALAISE [None]
  - NAUSEA [None]
